FAERS Safety Report 11520970 (Version 1)
Quarter: 2015Q3

REPORT INFORMATION
  Report Type: Spontaneous
  Country: IT (occurrence: IT)
  Receive Date: 20150918
  Receipt Date: 20150918
  Transmission Date: 20151125
  Serious: Yes (Other)
  Sender: FDA-Public Use
  Company Number: IT-ACTAVIS-2015-19767

PATIENT
  Age: 19 Year
  Sex: Female

DRUGS (1)
  1. TOPIRAMATE (UNKNOWN) [Suspect]
     Active Substance: TOPIRAMATE
     Indication: MIGRAINE WITH AURA
     Dosage: 25 MG, DAILY
     Route: 065

REACTIONS (1)
  - Visual impairment [Recovered/Resolved]
